FAERS Safety Report 7148543-4 (Version None)
Quarter: 2010Q4

REPORT INFORMATION
  Report Type: 
  Country: None (occurrence: None)
  Receive Date: 20101209
  Receipt Date: 20101203
  Transmission Date: 20110411
  Serious: Yes (Death)
  Sender: FDA-Public Use
  Company Number: NL-BRISTOL-MYERS SQUIBB COMPANY-15428626

PATIENT
  Age: 70 Year
  Sex: Male

DRUGS (9)
  1. CETUXIMAB [Suspect]
     Indication: NON-SMALL CELL LUNG CANCER
     Route: 042
     Dates: start: 20101005
  2. CISPLATIN [Suspect]
     Indication: NON-SMALL CELL LUNG CANCER
     Dosage: 5 DAYS IN A WEEK
     Route: 042
     Dates: start: 20101012
  3. ASCAL [Concomitant]
  4. SIMVASTATIN [Concomitant]
  5. THYRAX [Concomitant]
  6. PARACETAMOL [Concomitant]
  7. SERETIDE [Concomitant]
  8. OXYCONTIN [Concomitant]
  9. OXYNORM [Concomitant]

REACTIONS (2)
  - MULTI-ORGAN FAILURE [None]
  - PSEUDOMONAS INFECTION [None]
